FAERS Safety Report 4440611-0 (Version None)
Quarter: 2004Q3

REPORT INFORMATION
  Report Type: 
  Country: None (occurrence: None)
  Receive Date: 20040831
  Receipt Date: 20040514
  Transmission Date: 20050211
  Serious: Yes (Hospitalization, Other)
  Sender: FDA-Public Use
  Company Number: USA040567581

PATIENT
  Age: 35 Year
  Sex: Male

DRUGS (1)
  1. SYMBYAX [Suspect]
     Dates: start: 20040101

REACTIONS (1)
  - PULMONARY EMBOLISM [None]
